FAERS Safety Report 16780625 (Version 1)
Quarter: 2019Q3

REPORT INFORMATION
  Report Type: Spontaneous
  Country: US (occurrence: US)
  Receive Date: 20190906
  Receipt Date: 20190906
  Transmission Date: 20191005
  Serious: Yes (Life-Threatening)
  Sender: FDA-Public Use
  Company Number: None

PATIENT
  Age: 60 Year
  Sex: Female
  Weight: 67.5 kg

DRUGS (3)
  1. LEVOTHOROXIN [Concomitant]
  2. ESTRODIAL [Concomitant]
     Active Substance: ESTRADIOL
  3. CBD VAPE PEN [Suspect]
     Active Substance: CANNABIDIOL\DEVICE\HERBALS
     Indication: PAIN
     Route: 055
     Dates: start: 20180110, end: 20180110

REACTIONS (9)
  - Vomiting [None]
  - Heart rate increased [None]
  - Respiratory arrest [None]
  - Malaise [None]
  - Heart rate irregular [None]
  - Cardiac arrest [None]
  - Dyspnoea [None]
  - Lung disorder [None]
  - Thermal burn [None]

NARRATIVE: CASE EVENT DATE: 20180110
